FAERS Safety Report 15330289 (Version 1)
Quarter: 2018Q3

REPORT INFORMATION
  Report Type: Spontaneous
  Country: US (occurrence: US)
  Receive Date: 20180824
  Receipt Date: 20180824
  Transmission Date: 20181010
  Serious: Yes (Life-Threatening)
  Sender: FDA-Public Use
  Company Number: None

PATIENT
  Age: 58 Year
  Sex: Female
  Weight: 56.3 kg

DRUGS (1)
  1. CEFEPIME [Suspect]
     Active Substance: CEFEPIME HYDROCHLORIDE
     Indication: BLOOD CULTURE POSITIVE
     Route: 040
     Dates: start: 20180824

REACTIONS (4)
  - Burning sensation [None]
  - Urticaria [None]
  - Rash generalised [None]
  - Swollen tongue [None]

NARRATIVE: CASE EVENT DATE: 20180824
